FAERS Safety Report 10395514 (Version 2)
Quarter: 2015Q2

REPORT INFORMATION
  Report Type: Report from Study
  Country: TR (occurrence: TR)
  Receive Date: 20140820
  Receipt Date: 20150409
  Transmission Date: 20150821
  Serious: Yes (Hospitalization)
  Sender: FDA-Public Use
  Company Number: TR-NOVOPROD-419164

PATIENT
  Sex: Male
  Weight: 2.65 kg

DRUGS (3)
  1. MAGNORM [Concomitant]
     Indication: MINERAL SUPPLEMENTATION
     Dosage: 1 X 1
     Route: 064
     Dates: start: 201403, end: 20140531
  2. INSULIN DETEMIR FLEXPEN [Suspect]
     Active Substance: INSULIN DETEMIR
     Indication: GESTATIONAL DIABETES
     Dosage: 10 IU, QD
     Route: 064
     Dates: start: 20140416, end: 20140531
  3. DECAVIT                            /06014801/ [Concomitant]
     Indication: VITAMIN SUPPLEMENTATION
     Dosage: 1 X 1
     Route: 064
     Dates: start: 201401, end: 20140531

REACTIONS (3)
  - Neonatal infection [Recovered/Resolved]
  - Foetal exposure during pregnancy [Recovered/Resolved]
  - Premature baby [Unknown]

NARRATIVE: CASE EVENT DATE: 20140416
